FAERS Safety Report 10512166 (Version 3)
Quarter: 2015Q2

REPORT INFORMATION
  Report Type: Spontaneous
  Country: US (occurrence: US)
  Receive Date: 20141010
  Receipt Date: 20150507
  Transmission Date: 20150821
  Serious: No
  Sender: FDA-Public Use
  Company Number: US-PFIZER INC-2014275978

PATIENT
  Age: 49 Year
  Sex: Female
  Weight: 58 kg

DRUGS (1)
  1. ADVIL [Suspect]
     Active Substance: IBUPROFEN
     Indication: HEADACHE
     Dosage: 2-3 CAPSULE, UNK
     Route: 048
     Dates: end: 2014

REACTIONS (2)
  - Abdominal discomfort [Recovering/Resolving]
  - Product odour abnormal [Recovering/Resolving]

NARRATIVE: CASE EVENT DATE: 201409
